FAERS Safety Report 11349506 (Version 1)
Quarter: 2015Q3

REPORT INFORMATION
  Report Type: Spontaneous
  Country: US (occurrence: None)
  Receive Date: 20150805
  Receipt Date: 20150805
  Transmission Date: 20151125
  Serious: No
  Sender: FDA-Public Use
  Company Number: None

PATIENT
  Age: 68 Year
  Sex: Female

DRUGS (11)
  1. HYDROMORPHONE [Suspect]
     Active Substance: HYDROMORPHONE
     Indication: PAIN
     Dosage: 0.4 MG  PRN  PCA
     Dates: start: 20141117, end: 20141220
  2. DULOXETINE. [Concomitant]
     Active Substance: DULOXETINE
  3. HEPARIN [Concomitant]
     Active Substance: HEPARIN SODIUM
  4. FAMOTIDINE. [Concomitant]
     Active Substance: FAMOTIDINE
  5. LEVOTHYROXINE. [Concomitant]
     Active Substance: LEVOTHYROXINE
  6. INSULIN ASPART [Concomitant]
     Active Substance: INSULIN ASPART
  7. LIDOCAINE. [Concomitant]
     Active Substance: LIDOCAINE
  8. ACETAMINOPHEN. [Concomitant]
     Active Substance: ACETAMINOPHEN
  9. AMPICILLIN AND SULBACTAM [Concomitant]
     Active Substance: AMPICILLIN SODIUM\SULBACTAM SODIUM
  10. DIAZEPAM. [Concomitant]
     Active Substance: DIAZEPAM
  11. ONDANSETRON [Concomitant]
     Active Substance: ONDANSETRON

REACTIONS (2)
  - Mental status changes [None]
  - Respiratory rate decreased [None]

NARRATIVE: CASE EVENT DATE: 20141117
